FAERS Safety Report 6957348-6 (Version None)
Quarter: 2010Q3

REPORT INFORMATION
  Report Type: 
  Country: None (occurrence: None)
  Receive Date: 20100831
  Receipt Date: 20100730
  Transmission Date: 20110219
  Serious: Yes (Hospitalization)
  Sender: FDA-Public Use
  Company Number: KR-BAYER-201033318GPV

PATIENT
  Age: 71 Year
  Sex: Female
  Weight: 70 kg

DRUGS (8)
  1. SORAFENIB [Suspect]
     Indication: RENAL CELL CARCINOMA
     Route: 048
     Dates: start: 20090327
  2. AMLODIPINE [Concomitant]
     Indication: HYPERTENSION
     Route: 065
     Dates: start: 20090424
  3. VALSARTAN [Concomitant]
     Indication: HYPERTENSION
     Route: 065
     Dates: start: 20090424
  4. FINASTERIDE [Concomitant]
     Indication: DYSURIA
     Route: 065
     Dates: start: 20100324
  5. ACECLOFENAC [Concomitant]
     Indication: PAIN
     Route: 065
     Dates: start: 20100410
  6. CHLORPHENESIN CARBAMATE BULK-EXPORT [Concomitant]
     Indication: PAIN
     Route: 065
     Dates: start: 20100410
  7. REBAMIPIDE [Concomitant]
     Indication: PAIN
     Route: 065
     Dates: start: 20100410
  8. TRAMIPHEN [Concomitant]
     Indication: PAIN
     Route: 065
     Dates: start: 20100410

REACTIONS (1)
  - CEREBRAL INFARCTION [None]
